FAERS Safety Report 6155435-6 (Version None)
Quarter: 2009Q2

REPORT INFORMATION
  Report Type: 
  Country: None (occurrence: None)
  Receive Date: 20090415
  Receipt Date: 20090408
  Transmission Date: 20091009
  Serious: Yes (Hospitalization)
  Sender: FDA-Public Use
  Company Number: JP-JNJFOC-20090300155

PATIENT
  Sex: Female
  Weight: 75 kg

DRUGS (5)
  1. RISPERDAL ORO DISPERSIBLE TABLET [Suspect]
     Route: 048
  2. RISPERDAL ORO DISPERSIBLE TABLET [Suspect]
     Indication: SCHIZOPHRENIA
     Route: 048
  3. FLUNITRAZEPAM [Suspect]
     Indication: SCHIZOPHRENIA
     Route: 048
  4. PERSANTINE [Suspect]
     Indication: GLOMERULONEPHRITIS CHRONIC
     Route: 048
  5. LEXOTAN [Suspect]
     Indication: SCHIZOPHRENIA
     Route: 048

REACTIONS (4)
  - GRANULOCYTOPENIA [None]
  - PLATELET COUNT DECREASED [None]
  - TREATMENT NONCOMPLIANCE [None]
  - WHITE BLOOD CELL COUNT DECREASED [None]
